FAERS Safety Report 12262030 (Version 1)
Quarter: 2016Q2

REPORT INFORMATION
  Report Type: Spontaneous
  Country: IT (occurrence: None)
  Receive Date: 20160412
  Receipt Date: 20160412
  Transmission Date: 20160815
  Serious: Yes (Hospitalization)
  Sender: FDA-Public Use
  Company Number: IT-ALSI-201600079

PATIENT
  Age: 69 Day
  Sex: Male
  Weight: 7.2 kg

DRUGS (5)
  1. SALBUTAMOL [Suspect]
     Active Substance: ALBUTEROL
     Indication: RESPIRATORY SYNCYTIAL VIRUS BRONCHIOLITIS
     Route: 055
  2. OXYGEN. [Suspect]
     Active Substance: OXYGEN
     Indication: RESPIRATORY SYNCYTIAL VIRUS BRONCHIOLITIS
     Route: 055
  3. IPRATROPIUM BROMIDE. [Suspect]
     Active Substance: IPRATROPIUM BROMIDE
  4. METHYLPREDNISOLONE. [Suspect]
     Active Substance: METHYLPREDNISOLONE
  5. EPINEPHRINE BITARTRATE [Suspect]
     Active Substance: EPINEPHRINE BITARTRATE

REACTIONS (3)
  - Neonatal respiratory distress syndrome [None]
  - Condition aggravated [None]
  - Off label use [None]
